FAERS Safety Report 5206956-1 (Version None)
Quarter: 2007Q1

REPORT INFORMATION
  Report Type: 
  Country: None (occurrence: None)
  Receive Date: 20070108
  Receipt Date: 20070108
  Transmission Date: 20070707
  Serious: Yes (Hospitalization)
  Sender: FDA-Public Use
  Company Number: None

PATIENT
  Sex: Male
  Weight: 86.2 kg

DRUGS (4)
  1. BEVACIZUMAB (RHUMAB VEGF) [Suspect]
     Dosage: 1720 MG
     Dates: end: 20061226
  2. FLUOROURACIL [Suspect]
     Dosage: 3300 MG
     Dates: end: 20061226
  3. LEUCOVORIN CALCIUM [Suspect]
     Dosage: 3300 MG
     Dates: end: 20061226
  4. ELOXATIN [Suspect]
     Dosage: 700 MG
     Dates: end: 20061226

REACTIONS (2)
  - CHEST PAIN [None]
  - PULMONARY EMBOLISM [None]
